FAERS Safety Report 6298439-5 (Version None)
Quarter: 2009Q3

REPORT INFORMATION
  Report Type: 
  Country: None (occurrence: None)
  Receive Date: 20090805
  Receipt Date: 20090706
  Transmission Date: 20100115
  Serious: Yes (Hospitalization)
  Sender: FDA-Public Use
  Company Number: DE-WYE-H10456509

PATIENT
  Age: 45 Year
  Sex: Female

DRUGS (7)
  1. PANTOZOL [Suspect]
     Dosage: OVERDOSE AMOUNT WAS 280 MG AT ONCE
     Route: 048
  2. RAMIPRIL [Suspect]
     Dosage: OVERDOSE AMOUNT UNKNOWN
  3. ALCOHOL [Suspect]
     Dosage: OVERDOSE AMOUNT UNKNOWN
  4. IBUPROFEN [Suspect]
     Dosage: OVERDOSE AMOUNT UNKNOWN
  5. AMOXICILLIN [Suspect]
     Dosage: OVERDOSE AMOUNT UNKNOWN
  6. DICLOFENAC [Suspect]
     Dosage: OVERDOSE AMOUNT UNKNOWN
  7. BACTRIM [Suspect]
     Dosage: OVERDOSE AMOUNT UNKNOWN

REACTIONS (3)
  - HYPOTENSION [None]
  - INTENTIONAL OVERDOSE [None]
  - SUICIDE ATTEMPT [None]
